FAERS Safety Report 21856965 (Version 3)
Quarter: 2023Q1

REPORT INFORMATION
  Report Type: Report from Study
  Country: US (occurrence: US)
  Receive Date: 20230113
  Receipt Date: 20230329
  Transmission Date: 20230418
  Serious: Yes (Hospitalization, Other)
  Sender: FDA-Public Use
  Company Number: US-BIOGEN-2023BI01180788

PATIENT
  Sex: Female

DRUGS (1)
  1. VUMERITY [Suspect]
     Active Substance: DIROXIMEL FUMARATE
     Indication: Multiple sclerosis
     Route: 050
     Dates: start: 20200930

REACTIONS (5)
  - Seizure [Recovered/Resolved]
  - Gastroenteritis norovirus [Recovered/Resolved]
  - Malaise [Recovered/Resolved]
  - Multiple sclerosis [Recovered/Resolved]
  - Vomiting [Recovered/Resolved]
